FAERS Safety Report 12853793 (Version 3)
Quarter: 2016Q4

REPORT INFORMATION
  Report Type: Report from Study
  Country: AR (occurrence: AR)
  Receive Date: 20161017
  Receipt Date: 20161116
  Transmission Date: 20170207
  Serious: Yes (Other)
  Sender: FDA-Public Use
  Company Number: PHHY2016AR140420

PATIENT
  Age: 78 Year
  Sex: Female

DRUGS (8)
  1. ISOSORBIDE-5-MONONITRATE [Concomitant]
     Indication: CARDIAC DISORDER
     Dosage: 20 MG, UNK
     Route: 065
  2. GALVUS MET [Suspect]
     Active Substance: METFORMIN HYDROCHLORIDE\VILDAGLIPTIN
     Indication: TYPE 2 DIABETES MELLITUS
     Dosage: 1 DF (METFORMIN 1000 MG/ VILDAGLIPTIN 50 MG), UNK
     Route: 065
     Dates: start: 2014
  3. GALVUS MET [Suspect]
     Active Substance: METFORMIN HYDROCHLORIDE\VILDAGLIPTIN
     Dosage: 2 OR 3 DF, QD
     Route: 065
  4. DIOVAN [Suspect]
     Active Substance: VALSARTAN
     Indication: HYPERTENSION
     Dosage: 1 DF (80/160), QD
     Route: 065
     Dates: start: 201410
  5. LEVOTHYROXINE SODIUM. [Concomitant]
     Active Substance: LEVOTHYROXINE SODIUM
     Indication: THYROID DISORDER
     Dosage: 0.025 MG, UNK
     Route: 065
  6. GLIMEPIRIDE. [Concomitant]
     Active Substance: GLIMEPIRIDE
     Indication: BLOOD GLUCOSE INCREASED
     Dosage: 1 MG, QD
     Route: 065
  7. BISOPROLOL FUMARATE. [Concomitant]
     Active Substance: BISOPROLOL FUMARATE
     Indication: CARDIAC DISORDER
     Dosage: 2.5 MG, UNK
     Route: 065
  8. GALVUS MET [Suspect]
     Active Substance: METFORMIN HYDROCHLORIDE\VILDAGLIPTIN
     Dosage: 1/2 TABLET PER DAY
     Route: 065

REACTIONS (23)
  - Visual impairment [Unknown]
  - Urinary tract infection [Unknown]
  - Incorrect dose administered [Unknown]
  - Blood glucose increased [Unknown]
  - Pain [Recovered/Resolved]
  - Spinal disorder [Unknown]
  - Polyuria [Unknown]
  - Drug prescribing error [Unknown]
  - Arrhythmia [Unknown]
  - Blood glucose fluctuation [Unknown]
  - Dry mouth [Unknown]
  - Blood glucose decreased [Unknown]
  - Cataract [Unknown]
  - Malaise [Recovered/Resolved]
  - Fatigue [Unknown]
  - Infarction [Recovered/Resolved]
  - Hyperglycaemia [Unknown]
  - Hypoaesthesia [Unknown]
  - Pruritus [Unknown]
  - Dry skin [Unknown]
  - Loss of consciousness [Recovered/Resolved]
  - Asthenia [Unknown]
  - Pyrexia [Recovered/Resolved]

NARRATIVE: CASE EVENT DATE: 201501
